FAERS Safety Report 4764480-4 (Version None)
Quarter: 2005Q3

REPORT INFORMATION
  Report Type: 
  Country: None (occurrence: None)
  Receive Date: 20050906
  Receipt Date: 20050824
  Transmission Date: 20060218
  Serious: Yes (Other)
  Sender: FDA-Public Use
  Company Number: USA0508106375

PATIENT
  Age: 57 Year
  Sex: Male

DRUGS (4)
  1. XIGRIS [Suspect]
     Indication: SEPSIS
     Dates: start: 20050823, end: 20050823
  2. ANTIBIOTICS [Concomitant]
  3. INSULIN [Concomitant]
  4. TPN [Concomitant]

REACTIONS (1)
  - PLATELET COUNT DECREASED [None]
